FAERS Safety Report 4302001-0 (Version None)
Quarter: 2004Q1

REPORT INFORMATION
  Report Type: 
  Country: None (occurrence: None)
  Receive Date: 20040220
  Receipt Date: 20040209
  Transmission Date: 20041129
  Serious: Yes (Other)
  Sender: FDA-Public Use
  Company Number: US-JNJFOC-20031005833

PATIENT
  Age: 78 Year
  Sex: Male
  Weight: 77.1115 kg

DRUGS (5)
  1. REMICADE [Suspect]
     Indication: RHEUMATOID ARTHRITIS
     Dosage: INTRAVENOUS
     Route: 042
  2. METHOTREXATE (METHOTRXATE) [Concomitant]
  3. PREDNISONE [Concomitant]
  4. CALCIUM (CALCIUM) [Concomitant]
  5. TOPROL (METOPROLOL SUCCINATE) [Concomitant]

REACTIONS (5)
  - ABDOMINAL INFECTION [None]
  - DEAFNESS [None]
  - EAR INFECTION STAPHYLOCOCCAL [None]
  - IMPLANT SITE INFECTION [None]
  - STAPHYLOCOCCAL INFECTION [None]
